FAERS Safety Report 8612613-1 (Version None)
Quarter: 2012Q3

REPORT INFORMATION
  Report Type: 
  Country: None (occurrence: None)
  Receive Date: 20120822
  Receipt Date: 20110912
  Transmission Date: 20120928
  Serious: No
  Sender: FDA-Public Use
  Company Number: US-ASTRAZENECA-2011SE54655

PATIENT
  Sex: Male

DRUGS (1)
  1. SYMBICORT [Suspect]
     Dosage: 2 PUFFS BID
     Route: 055

REACTIONS (2)
  - ADVERSE EVENT [None]
  - INCORRECT DOSE ADMINISTERED [None]
